FAERS Safety Report 22321638 (Version 1)
Quarter: 2023Q2

REPORT INFORMATION
  Report Type: Report from Study
  Country: US (occurrence: US)
  Receive Date: 20230515
  Receipt Date: 20230515
  Transmission Date: 20230722
  Serious: Yes (Other)
  Sender: FDA-Public Use
  Company Number: US-ABBVIE-4765694

PATIENT
  Sex: Male

DRUGS (1)
  1. HUMIRA [Suspect]
     Active Substance: ADALIMUMAB
     Indication: Crohn^s disease
     Dosage: CITRATE FREE
     Route: 058

REACTIONS (6)
  - Internal haemorrhage [Unknown]
  - Headache [Not Recovered/Not Resolved]
  - Malaise [Unknown]
  - Lethargy [Unknown]
  - Asthenia [Unknown]
  - Haematochezia [Unknown]

NARRATIVE: CASE EVENT DATE: 20230101
